FAERS Safety Report 23566490 (Version 2)
Quarter: 2024Q3

REPORT INFORMATION
  Report Type: Report from Study
  Country: US (occurrence: US)
  Receive Date: 20240226
  Receipt Date: 20240910
  Transmission Date: 20241017
  Serious: Yes (Other)
  Sender: ABBVIE
  Company Number: US-ABBVIE-5645723

PATIENT
  Sex: Female

DRUGS (1)
  1. HUMIRA [Suspect]
     Active Substance: ADALIMUMAB
     Indication: Psoriatic arthropathy
     Dosage: CITRATE FREE, FORM STRENGTH: 40 MILLIGRAM
     Route: 058
     Dates: start: 20220321

REACTIONS (15)
  - Anaphylactic reaction [Recovered/Resolved]
  - Injection site erythema [Not Recovered/Not Resolved]
  - Nerve injury [Recovering/Resolving]
  - Organ failure [Not Recovered/Not Resolved]
  - Injection site pruritus [Not Recovered/Not Resolved]
  - Rubber sensitivity [Recovered/Resolved]
  - Cardiac disorder [Unknown]
  - Vitamin B complex deficiency [Unknown]
  - Headache [Unknown]
  - Autoimmune thyroiditis [Unknown]
  - Psoriatic arthropathy [Unknown]
  - Hidradenitis [Unknown]
  - Blood pressure systolic increased [Unknown]
  - Impaired gastric emptying [Not Recovered/Not Resolved]
  - Drug hypersensitivity [Unknown]
